FAERS Safety Report 9311695 (Version 2)
Quarter: 2013Q3

REPORT INFORMATION
  Report Type: Report from Study
  Country: JP (occurrence: JP)
  Receive Date: 20130528
  Receipt Date: 20130920
  Transmission Date: 20140515
  Serious: Yes (Other)
  Sender: FDA-Public Use
  Company Number: JP-ROCHE-1201341

PATIENT
  Age: 75 Year
  Sex: Female

DRUGS (3)
  1. METHOXY POLYETHYLENE GLYCOL-EPOETIN BETA [Suspect]
     Indication: NEPHROGENIC ANAEMIA
     Route: 042
     Dates: start: 20120201, end: 20121003
  2. NEO-MINOPHAGEN C [Concomitant]
     Dosage: AT EACH DIALYSIS
     Route: 042
  3. METHYCOBAL [Concomitant]
     Dosage: AT EACH DIALYSIS
     Route: 042
     Dates: start: 20120319, end: 20120413

REACTIONS (2)
  - Anaemia [Unknown]
  - Malignant peritoneal neoplasm [Recovering/Resolving]
